FAERS Safety Report 8990726 (Version 1)
Quarter: 2012Q4

REPORT INFORMATION
  Report Type: 
  Country: US (occurrence: US)
  Receive Date: 20121228
  Receipt Date: 20121228
  Transmission Date: 20130627
  Serious: No
  Sender: FDA-Public Use
  Company Number: US-PFIZER INC-2012329919

PATIENT
  Age: 52 Year
  Sex: Female
  Weight: 75 kg

DRUGS (6)
  1. ADVIL [Suspect]
     Indication: KNEE OPERATION
     Dosage: 200 mg, 3x/day
     Route: 048
     Dates: start: 20121220
  2. ADVIL [Suspect]
     Dosage: 600 mg, 4x/day
     Route: 048
  3. ADVIL [Suspect]
     Dosage: 400 mg, 4x/day
     Route: 048
     Dates: end: 20121226
  4. ZEGERID [Suspect]
     Indication: ACID REFLUX (ESOPHAGEAL)
     Dosage: 40 mg, daily
  5. HYDROCODONE W/ACETAMINOPHEN [Suspect]
     Indication: PAIN
     Dosage: 1-2 tablets of 5/325mg, every 4 hrs
     Dates: start: 20121220, end: 20121223
  6. ASPIRIN [Concomitant]
     Dosage: UNK

REACTIONS (3)
  - Accidental overdose [Unknown]
  - Bowel movement irregularity [Unknown]
  - Gastritis [Unknown]
